FAERS Safety Report 14667532 (Version 4)
Quarter: 2018Q4

REPORT INFORMATION
  Report Type: Spontaneous
  Country: IT (occurrence: IT)
  Receive Date: 20180322
  Receipt Date: 20181226
  Transmission Date: 20190204
  Serious: Yes (Hospitalization)
  Sender: FDA-Public Use
  Company Number: IT-ACCORD-062208

PATIENT
  Age: 45 Year
  Sex: Male

DRUGS (1)
  1. CLOZAPINE. [Suspect]
     Active Substance: CLOZAPINE
     Indication: SCHIZOPHRENIA
     Dosage: DOSE REDUCED TO 400 MG, 100 MG (QD)
     Route: 048

REACTIONS (3)
  - Dyspnoea [Recovering/Resolving]
  - Illness anxiety disorder [Recovered/Resolved]
  - Refusal of treatment by patient [Unknown]
